FAERS Safety Report 22001988 (Version 2)
Quarter: 2023Q4

REPORT INFORMATION
  Report Type: Spontaneous
  Country: JP (occurrence: JP)
  Receive Date: 20230216
  Receipt Date: 20231025
  Transmission Date: 20240110
  Serious: Yes (Hospitalization, Other)
  Sender: FDA-Public Use
  Company Number: JP-002147023-NVSJ2022JP099903

PATIENT
  Age: 22 Year
  Sex: Male
  Weight: 61 kg

DRUGS (1)
  1. GILENYA [Suspect]
     Active Substance: FINGOLIMOD HYDROCHLORIDE
     Indication: Secondary progressive multiple sclerosis
     Dosage: 0.5 MG
     Route: 048
     Dates: start: 20171017, end: 20210131

REACTIONS (9)
  - Multiple sclerosis relapse [Recovered/Resolved]
  - Memory impairment [Unknown]
  - Visual acuity reduced [Unknown]
  - Headache [Unknown]
  - Dizziness [Unknown]
  - Multiple sclerosis relapse [Recovered/Resolved]
  - Memory impairment [Unknown]
  - Headache [Unknown]
  - Optic neuritis [Recovering/Resolving]

NARRATIVE: CASE EVENT DATE: 20181201
